FAERS Safety Report 8445015-1 (Version None)
Quarter: 2012Q2

REPORT INFORMATION
  Report Type: 
  Country: None (occurrence: None)
  Receive Date: 20120618
  Receipt Date: 20120611
  Transmission Date: 20120825
  Serious: Yes (Hospitalization, Other)
  Sender: FDA-Public Use
  Company Number: CA-ROCHE-1069076

PATIENT
  Sex: Male

DRUGS (8)
  1. SPIRIVA [Concomitant]
  2. XOLAIR [Suspect]
     Indication: ASTHMA
     Route: 058
     Dates: start: 20111109, end: 20120112
  3. LIPITOR [Concomitant]
  4. SINGULAIR [Concomitant]
  5. APO-SALVENT [Concomitant]
  6. SYMBICORT [Concomitant]
  7. VENTOLIN [Concomitant]
  8. RABEPRAZOLE SODIUM [Concomitant]

REACTIONS (5)
  - PNEUMOCOCCAL INFECTION [None]
  - LUNG INFECTION [None]
  - PSEUDOMONAS INFECTION [None]
  - BRONCHOPNEUMONIA [None]
  - PRODUCTIVE COUGH [None]
